FAERS Safety Report 4338869-1 (Version None)
Quarter: 2004Q2

REPORT INFORMATION
  Report Type: 
  Country: None (occurrence: None)
  Receive Date: 20040409
  Receipt Date: 20040330
  Transmission Date: 20050107
  Serious: Yes (Hospitalization)
  Sender: FDA-Public Use
  Company Number: A001-OCT-3369

PATIENT
  Age: 60 Year
  Sex: Female

DRUGS (1)
  1. ARICEPT [Suspect]
     Indication: DEMENTIA ALZHEIMER'S TYPE
     Dosage: 15 MG, 1 IN 1 D, ORAL
     Route: 048
     Dates: start: 20031026

REACTIONS (7)
  - CONVULSION [None]
  - DYSKINESIA [None]
  - GRUNTING [None]
  - INFLAMMATION [None]
  - MOANING [None]
  - URINARY TRACT INFECTION [None]
  - VIRAL INFECTION [None]
